FAERS Safety Report 5603169-6 (Version None)
Quarter: 2008Q1

REPORT INFORMATION
  Report Type: 
  Country: None (occurrence: None)
  Receive Date: 20080125
  Receipt Date: 20080115
  Transmission Date: 20080703
  Serious: Yes (Death)
  Sender: FDA-Public Use
  Company Number: DE-PFIZER INC-2008005132

PATIENT
  Sex: Female

DRUGS (19)
  1. NORVASC [Suspect]
     Indication: HYPERTENSION
     Route: 048
  2. CLEXANE [Suspect]
     Indication: THROMBOSIS PROPHYLAXIS
     Dosage: DAILY DOSE:.2ML
     Route: 058
     Dates: start: 20050326, end: 20050408
  3. NIFEDIPINE [Suspect]
     Indication: HYPERTENSION
     Route: 048
     Dates: start: 20030101, end: 20050408
  4. ENALAPRIL MALEATE [Suspect]
     Indication: HYPERTENSION
     Route: 048
     Dates: start: 20050326, end: 20050408
  5. TUTOFUSIN [Suspect]
     Route: 042
     Dates: start: 20050326, end: 20050408
  6. TPN [Suspect]
     Indication: PARENTERAL NUTRITION
     Route: 042
     Dates: start: 20050326, end: 20050408
  7. LORZAAR [Suspect]
     Route: 048
     Dates: start: 20030101, end: 20050419
  8. METOPROLOL SUCCINATE [Suspect]
     Indication: HYPERTENSION
     Route: 048
  9. UNAT [Suspect]
     Indication: RENAL FAILURE
     Route: 048
  10. ALLOPURINOL [Suspect]
     Route: 048
  11. SIMVASTATIN [Suspect]
     Route: 048
  12. IDEOS [Suspect]
     Indication: HYPERPARATHYROIDISM SECONDARY
     Route: 048
  13. CLONT [Suspect]
     Route: 048
     Dates: start: 20050330, end: 20050408
  14. DECORTIN-H [Suspect]
     Route: 048
  15. NEBILET [Concomitant]
     Route: 048
     Dates: start: 20030101, end: 20050326
  16. MOXONIDINE [Concomitant]
     Route: 048
     Dates: start: 20030101, end: 20050326
  17. QUINAPRIL HCL [Concomitant]
     Route: 048
     Dates: start: 20030101, end: 20050326
  18. PIPRIL [Concomitant]
     Route: 042
     Dates: start: 20050326, end: 20050329
  19. COMBACTAM [Concomitant]
     Indication: DIVERTICULITIS
     Route: 042
     Dates: start: 20050326, end: 20050329

REACTIONS (1)
  - STEVENS-JOHNSON SYNDROME [None]
